FAERS Safety Report 5147774-2 (Version None)
Quarter: 2006Q4

REPORT INFORMATION
  Report Type: 
  Country: None (occurrence: None)
  Receive Date: 20061110
  Receipt Date: 20060222
  Transmission Date: 20070319
  Serious: Yes (Death, Hospitalization)
  Sender: FDA-Public Use
  Company Number: US-BRISTOL-MYERS SQUIBB COMPANY-13293238

PATIENT
  Age: 68 Year
  Sex: Male

DRUGS (6)
  1. ERBITUX [Suspect]
     Indication: NON-SMALL CELL LUNG CANCER
     Route: 042
     Dates: start: 20060215, end: 20060221
  2. TAXOL [Suspect]
     Indication: NON-SMALL CELL LUNG CANCER
     Route: 042
     Dates: start: 20060215, end: 20060221
  3. CARBOPLATIN [Suspect]
     Indication: NON-SMALL CELL LUNG CANCER
     Route: 042
     Dates: start: 20060215, end: 20060221
  4. LISINOPRIL [Concomitant]
  5. NORVASC [Concomitant]
  6. NAPROSYN [Concomitant]

REACTIONS (18)
  - ANAEMIA [None]
  - BLOOD CREATININE INCREASED [None]
  - BLOOD SODIUM DECREASED [None]
  - BLOOD UREA INCREASED [None]
  - CONTUSION [None]
  - ELECTROLYTE IMBALANCE [None]
  - FALL [None]
  - FRACTURE [None]
  - HUMERUS FRACTURE [None]
  - HYPOKALAEMIA [None]
  - JOINT DISLOCATION [None]
  - MALIGNANT NEOPLASM PROGRESSION [None]
  - NEUTROPENIA [None]
  - NON-SMALL CELL LUNG CANCER [None]
  - OCCULT BLOOD POSITIVE [None]
  - OEDEMA PERIPHERAL [None]
  - PLATELET COUNT DECREASED [None]
  - PNEUMONIA [None]
